FAERS Safety Report 15458934 (Version 1)
Quarter: 2018Q3

REPORT INFORMATION
  Report Type: Spontaneous
  Country: US (occurrence: US)
  Receive Date: 20180928
  Receipt Date: 20180928
  Transmission Date: 20181010
  Serious: No
  Sender: FDA-Public Use
  Company Number: None

PATIENT
  Age: 50 Year
  Sex: Male

DRUGS (1)
  1. NUCALA [Suspect]
     Active Substance: MEPOLIZUMAB
     Indication: PULMONARY EOSINOPHILIA
     Dosage: ?          OTHER STRENGTH:100MG/VL;?
     Route: 058
     Dates: start: 20161031

REACTIONS (4)
  - Urine abnormality [None]
  - Urine odour abnormal [None]
  - Teeth brittle [None]
  - Chromaturia [None]

NARRATIVE: CASE EVENT DATE: 20180202
